FAERS Safety Report 23290791 (Version 4)
Quarter: 2024Q1

REPORT INFORMATION
  Report Type: Spontaneous
  Country: CA (occurrence: CA)
  Receive Date: 20231213
  Receipt Date: 20240207
  Transmission Date: 20240410
  Serious: Yes (Hospitalization, Other)
  Sender: FDA-Public Use
  Company Number: CA-CELLTRION INC.-2023CA023783

PATIENT

DRUGS (8)
  1. INFLECTRA [Suspect]
     Active Substance: INFLIXIMAB-DYYB
     Indication: Colitis ulcerative
     Dosage: 10MG/KG AT WEEK 0, 2 AND 6, THEN 5MG/KG EVERY 8 WEEKS
     Route: 042
     Dates: start: 20230619
  2. INFLECTRA [Suspect]
     Active Substance: INFLIXIMAB-DYYB
     Dosage: 10MG/KG, AT WEEK 0, 2 AND 6, THEN 5MG/KG EVERY 8 WEEKS
     Route: 042
     Dates: start: 20231012
  3. INFLECTRA [Suspect]
     Active Substance: INFLIXIMAB-DYYB
     Dosage: 285 MG (5MG/KG) EVERY 8 WEEKS (10MG/KG, AT WEEK 0, 2 AND 6, THEN 5MG/KG EVERY 8 WEEKS)
     Route: 042
     Dates: start: 20231204
  4. INFLECTRA [Suspect]
     Active Substance: INFLIXIMAB-DYYB
     Dosage: 10 MG/KG, AFTER 4 WEEKS AND 2 DAYS (PRESCRIBED EVERY 4 WEEKS)
     Route: 042
     Dates: start: 20240103
  5. INFLECTRA [Suspect]
     Active Substance: INFLIXIMAB-DYYB
     Dosage: 580 MG (10 MG/KG), AFTER 3 WEEKS AND 5 DAYS (PRESCRIBED EVERY 4 WEEKS)
     Route: 042
     Dates: start: 20240129
  6. CAL D3 [CALCIUM;COLECALCIFEROL] [Concomitant]
     Dosage: 500 MG
  7. CORTISONE [Concomitant]
     Active Substance: CORTISONE
     Dosage: UNK
  8. CORTISONE [Concomitant]
     Active Substance: CORTISONE
     Dosage: 40 MG

REACTIONS (4)
  - Condition aggravated [Recovered/Resolved]
  - Weight decreased [Unknown]
  - Off label use [Unknown]
  - Inappropriate schedule of product administration [Unknown]

NARRATIVE: CASE EVENT DATE: 20230101
